FAERS Safety Report 4957732-6 (Version None)
Quarter: 2006Q1

REPORT INFORMATION
  Report Type: 
  Country: None (occurrence: None)
  Receive Date: 20060324
  Receipt Date: 20060313
  Transmission Date: 20060701
  Serious: Yes (Disabling)
  Sender: FDA-Public Use
  Company Number: 2006037061

PATIENT
  Age: 57 Year
  Sex: Female

DRUGS (8)
  1. COVERA-HS [Suspect]
     Indication: HYPERTENSION
     Dosage: SEE IMAGE
     Dates: end: 20060201
  2. COVERA-HS [Suspect]
     Indication: HYPERTENSION
     Dosage: SEE IMAGE
  3. DYAZIDE [Concomitant]
  4. EFFEXOR XR [Concomitant]
  5. ZANTAC [Concomitant]
  6. SYNTHROID [Concomitant]
  7. KLONOPIN [Concomitant]
  8. STRATTERA [Concomitant]

REACTIONS (5)
  - ATTENTION DEFICIT/HYPERACTIVITY DISORDER [None]
  - BIPOLAR DISORDER [None]
  - BLOOD PRESSURE INCREASED [None]
  - ECONOMIC PROBLEM [None]
  - WEIGHT FLUCTUATION [None]
